FAERS Safety Report 23576613 (Version 1)
Quarter: 2024Q1

REPORT INFORMATION
  Report Type: Spontaneous
  Country: FR (occurrence: FR)
  Receive Date: 20240228
  Receipt Date: 20240228
  Transmission Date: 20240410
  Serious: Yes (Hospitalization)
  Sender: FDA-Public Use
  Company Number: None

PATIENT
  Age: 59 Year
  Sex: Female
  Weight: 65 kg

DRUGS (7)
  1. METFORMIN [Suspect]
     Active Substance: METFORMIN HYDROCHLORIDE
     Indication: Type 2 diabetes mellitus
     Dosage: METFORMINE
     Route: 048
     Dates: start: 2013, end: 20221203
  2. TAHOR [Concomitant]
     Active Substance: ATORVASTATIN CALCIUM
     Indication: Dyslipidaemia
     Route: 048
  3. RAMIPRIL [Suspect]
     Active Substance: RAMIPRIL
     Indication: Hypertension
     Route: 048
     Dates: end: 20221203
  4. PANTOPRAZOLE [Concomitant]
     Active Substance: PANTOPRAZOLE
     Indication: Gastritis prophylaxis
     Dosage: UNDOCUMENTED
     Route: 048
  5. BISOPROLOL [Concomitant]
     Active Substance: BISOPROLOL\BISOPROLOL FUMARATE
     Indication: Hypertension
     Route: 048
  6. KARDEGIC [Concomitant]
     Active Substance: ASPIRIN DL-LYSINE
     Indication: Ischaemic heart disease prophylaxis
     Dosage: POWDER FOR ORAL SOLUTION IN SACHET-DOSE
     Route: 048
  7. TICAGRELOR [Concomitant]
     Active Substance: TICAGRELOR
     Indication: Ischaemic heart disease prophylaxis
     Route: 048

REACTIONS (3)
  - Lactic acidosis [Recovering/Resolving]
  - Potentiating drug interaction [Recovered/Resolved]
  - Drug level above therapeutic [Recovering/Resolving]

NARRATIVE: CASE EVENT DATE: 20221203
